FAERS Safety Report 8220162-8 (Version None)
Quarter: 2012Q1

REPORT INFORMATION
  Report Type: 
  Country: None (occurrence: None)
  Receive Date: 20120320
  Receipt Date: 20120307
  Transmission Date: 20120608
  Serious: Yes (Hospitalization)
  Sender: FDA-Public Use
  Company Number: US-BAYER-2011-063878

PATIENT
  Age: 29 Year
  Sex: Female

DRUGS (22)
  1. METFORMIN HYDROCHLORIDE [Concomitant]
     Indication: POLYCYSTIC OVARIES
     Dosage: 500MG -1000MG/1TAB 2XDAILY
     Route: 048
  2. AZITHROMYCIN [Concomitant]
     Dosage: 500 MG, UNK
     Route: 048
  3. PRIMACARE [Concomitant]
     Route: 048
  4. YAZ [Suspect]
     Indication: MENSTRUAL DISORDER
  5. DONNATAL [Concomitant]
     Dosage: 16 MG, UNK
     Route: 048
  6. CEFIXIME [Concomitant]
     Dosage: 400 MG, UNK
     Route: 048
  7. PROMETHAZINE [Concomitant]
     Dosage: 25 MG, QID
     Route: 048
  8. CIPROFLOXACIN [Concomitant]
     Dosage: 250 MG, BID
     Route: 048
  9. YAZ [Suspect]
     Indication: CONTRACEPTION
     Dosage: UNK
     Dates: start: 20070321
  10. YASMIN [Suspect]
     Indication: CONTRACEPTION
     Dosage: UNK
     Dates: start: 20070101, end: 20100101
  11. NEXIUM [Concomitant]
     Dosage: 40 MG, UNK
     Route: 048
  12. VICODIN [Concomitant]
     Indication: PAIN
     Dosage: 5-500MG/1 TAB EVERY 6 HOURS AS NEEDED FOR 10 HOURS
     Route: 048
  13. TESSALON [Concomitant]
     Indication: COUGH
     Dosage: 200 MG, TID
     Route: 048
  14. BELLADONNA ALKALOIDS [Concomitant]
     Route: 048
  15. SUPRAX [Concomitant]
     Dosage: 400 MG, UNK
     Route: 048
  16. ALBUTEROL [Concomitant]
     Indication: COUGH
     Dosage: 90 MCG/24HR, PRN
  17. YAZ [Suspect]
     Indication: POLYCYSTIC OVARIES
  18. VALTREX [Concomitant]
     Dosage: 500 MG, UNK
  19. PHENERGAN [Concomitant]
     Dosage: 25 MG, QID
     Route: 048
  20. YASMIN [Suspect]
     Indication: POLYCYSTIC OVARIES
  21. YASMIN [Suspect]
     Indication: MENSTRUAL DISORDER
  22. CHANTIX [Concomitant]
     Dosage: 1 MG, QD
     Route: 048

REACTIONS (11)
  - ABDOMINAL DISTENSION [None]
  - BILIARY DYSKINESIA [None]
  - EMOTIONAL DISTRESS [None]
  - SCAR [None]
  - DEPRESSION [None]
  - DYSPEPSIA [None]
  - FLATULENCE [None]
  - CONSTIPATION [None]
  - CHOLECYSTECTOMY [None]
  - DIARRHOEA [None]
  - ANXIETY [None]
